FAERS Safety Report 8082453 (Version 5)
Quarter: 2013Q1

REPORT INFORMATION
  Report Type: Spontaneous
  Country: US (occurrence: None)
  Receive Date: 20110729
  Receipt Date: 20130131
  Transmission Date: 20140127
  Serious: Yes (Hospitalization)
  Sender: FDA-Public Use
  Company Number: JPI-P-015926

PATIENT
  Age: 60 Year
  Sex: Female
  Weight: 63.05 kg

DRUGS (9)
  1. XYREM [Suspect]
     Indication: SOMNOLENCE
     Dosage: (2.25 MG,2 IN 1 D)
     Route: 048
     Dates: start: 20051013, end: 20070829
  2. XYREM [Suspect]
     Indication: NARCOLEPSY
     Dosage: (2.25 MG,2 IN 1 D)
     Route: 048
     Dates: start: 20051013, end: 20070829
  3. XYREM [Suspect]
     Indication: FIBROMYALGIA
     Dosage: (2.25 MG,2 IN 1 D)
     Route: 048
     Dates: start: 20051013, end: 20070829
  4. LORAZEPAM [Suspect]
     Indication: ANXIETY
     Dosage: (1 MG,2 IN 1 D)
     Route: 048
     Dates: start: 200910, end: 20110703
  5. LORAZEPAM [Suspect]
     Indication: PANIC ATTACK
     Dosage: (1 MG,2 IN 1 D)
     Route: 048
     Dates: start: 200910, end: 20110703
  6. PROPRANOLOL HYDROCHLORIDE [Suspect]
     Indication: PRODUCT USED FOR UNKNOWN INDICATION
  7. PAROXETINE HYDROCHLORIDE [Concomitant]
  8. ESTRADIOL [Concomitant]
  9. FLUOXETINE HYDROCHLORIDE [Concomitant]

REACTIONS (8)
  - Nasopharyngitis [None]
  - Hypertension [None]
  - Anxiety [None]
  - Panic attack [None]
  - Feeling abnormal [None]
  - Withdrawal syndrome [None]
  - Adrenal disorder [None]
  - Headache [None]
